FAERS Safety Report 23995710 (Version 1)
Quarter: 2024Q2

REPORT INFORMATION
  Report Type: Spontaneous
  Country: JP (occurrence: JP)
  Receive Date: 20240620
  Receipt Date: 20240620
  Transmission Date: 20240716
  Serious: Yes (Other)
  Sender: FDA-Public Use
  Company Number: JP-TAKEDA-2024TUS061023

PATIENT
  Age: 43 Year
  Sex: Female

DRUGS (4)
  1. RAMELTEON [Interacting]
     Active Substance: RAMELTEON
     Indication: Product used for unknown indication
     Dosage: 8 MILLIGRAM, QD
     Route: 065
     Dates: start: 202307
  2. FLUNITRAZEPAM [Interacting]
     Active Substance: FLUNITRAZEPAM
     Indication: Product used for unknown indication
     Dosage: 2 MILLIGRAM, QD
     Route: 065
     Dates: start: 201912
  3. FLUNITRAZEPAM [Interacting]
     Active Substance: FLUNITRAZEPAM
     Dosage: 1 MILLIGRAM, QD
     Route: 065
     Dates: start: 202009
  4. FLUNITRAZEPAM [Interacting]
     Active Substance: FLUNITRAZEPAM
     Dosage: 2 MILLIGRAM, QD
     Route: 065
     Dates: start: 202303

REACTIONS (5)
  - Drug interaction [Recovered/Resolved]
  - Feeling abnormal [Recovered/Resolved]
  - Disinhibition [Recovered/Resolved]
  - Aggression [Recovered/Resolved]
  - Suicide attempt [Recovered/Resolved]
